FAERS Safety Report 12588143 (Version 1)
Quarter: 2016Q3

REPORT INFORMATION
  Report Type: Spontaneous
  Country: US (occurrence: US)
  Receive Date: 20160725
  Receipt Date: 20160725
  Transmission Date: 20161109
  Serious: No
  Sender: FDA-Public Use
  Company Number: US-PFIZER INC-2016320173

PATIENT
  Age: 5 Decade
  Sex: Female

DRUGS (2)
  1. DEPO-PROVERA [Concomitant]
     Active Substance: MEDROXYPROGESTERONE ACETATE
     Indication: OVARIAN CYST
     Dosage: 1 DF, CYCLIC; ONE INJECTION EVERY 3 MONTHS
     Dates: start: 1989
  2. VERAPAMIL HCL [Suspect]
     Active Substance: VERAPAMIL HYDROCHLORIDE
     Indication: HEART RATE IRREGULAR
     Dosage: 120 MG, 2X/DAY BY MOUTH; BLUE TABLET
     Route: 048
     Dates: start: 2008, end: 2008

REACTIONS (2)
  - Headache [Recovered/Resolved]
  - Gastric disorder [Recovered/Resolved]

NARRATIVE: CASE EVENT DATE: 2008
